FAERS Safety Report 20152559 (Version 3)
Quarter: 2022Q1

REPORT INFORMATION
  Report Type: Spontaneous
  Country: US (occurrence: US)
  Receive Date: 20211206
  Receipt Date: 20220331
  Transmission Date: 20220423
  Serious: No
  Sender: FDA-Public Use
  Company Number: US-LUPIN PHARMACEUTICALS INC.-2021-23548

PATIENT
  Sex: Female

DRUGS (1)
  1. ALBUTEROL SULFATE [Suspect]
     Active Substance: ALBUTEROL SULFATE
     Indication: Asthma
     Dosage: UNK (, TAKES 1-2 PUFFS 4 TIMES A DAY AS NEEDED)
     Dates: start: 20211007

REACTIONS (2)
  - Device delivery system issue [Unknown]
  - No adverse event [Unknown]
